FAERS Safety Report 6504262-6 (Version None)
Quarter: 2009Q4

REPORT INFORMATION
  Report Type: 
  Country: None (occurrence: None)
  Receive Date: 20091215
  Receipt Date: 20091201
  Transmission Date: 20100525
  Serious: Yes (Hospitalization, Other)
  Sender: FDA-Public Use
  Company Number: 1000010474

PATIENT
  Age: 22 Year
  Sex: Female

DRUGS (1)
  1. LEXAPRO [Suspect]
     Dosage: ORAL
     Dates: start: 20080101, end: 20080101

REACTIONS (3)
  - HYPERSENSITIVITY [None]
  - JOINT STIFFNESS [None]
  - OCULOGYRIC CRISIS [None]
